FAERS Safety Report 10019792 (Version 2)
Quarter: 2014Q1

REPORT INFORMATION
  Report Type: Spontaneous
  Country: US (occurrence: US)
  Receive Date: 20140318
  Receipt Date: 20140318
  Transmission Date: 20141002
  Serious: No
  Sender: FDA-Public Use
  Company Number: US-GALDERMA-US13003910

PATIENT
  Age: 31 Year
  Sex: Female

DRUGS (8)
  1. MIRVASO (BRIMONIDINE) TOPICAL GEL, 0.33% [Suspect]
     Indication: ROSACEA
     Dosage: 0.33%
     Route: 061
     Dates: start: 20131125, end: 20131201
  2. FLUTICASONE PROPIONATE [Concomitant]
     Dosage: 50 MCG
  3. WOMEN^S MULTIVITAMIN [Concomitant]
  4. FISH OIL [Concomitant]
     Dosage: 2000 MG
     Route: 048
  5. BIOTIN [Concomitant]
     Dosage: 2500 MCG
     Route: 048
  6. VITAMIN D3 [Concomitant]
     Dosage: 2000 IU
     Route: 048
  7. IRON [Concomitant]
     Dosage: 90 MG
     Route: 048
  8. VITAMIN C [Concomitant]
     Dosage: 500 MG
     Route: 048

REACTIONS (13)
  - Condition aggravated [Recovered/Resolved]
  - Rash [Recovered/Resolved]
  - Feeling hot [Recovered/Resolved]
  - Skin discomfort [Recovered/Resolved]
  - Pruritus [Recovered/Resolved]
  - Anxiety [Recovered/Resolved]
  - Emotional distress [Recovered/Resolved]
  - Flushing [Recovered/Resolved]
  - Erythema [Recovered/Resolved]
  - Skin burning sensation [Recovered/Resolved]
  - Pain of skin [Recovered/Resolved]
  - Flushing [Recovered/Resolved]
  - Drug ineffective [Recovered/Resolved]
